FAERS Safety Report 7321513-9 (Version None)
Quarter: 2011Q1

REPORT INFORMATION
  Report Type: 
  Country: None (occurrence: None)
  Receive Date: 20110228
  Receipt Date: 20110222
  Transmission Date: 20110831
  Serious: Yes (Hospitalization)
  Sender: FDA-Public Use
  Company Number: US-ABBOTT-11P-163-0707085-00

PATIENT
  Sex: Female
  Weight: 63.106 kg

DRUGS (9)
  1. WELLBUTRIN [Concomitant]
     Indication: ANXIETY
  2. HUMIRA [Suspect]
     Dates: start: 20100701, end: 20100801
  3. SERTRALINE HYDROCHLORIDE [Concomitant]
     Indication: DEPRESSION
  4. RISPERDAL [Concomitant]
     Indication: DEPRESSION
  5. STEROIDS [Concomitant]
     Indication: CROHN'S DISEASE
     Dates: start: 20100801, end: 20110101
  6. HUMIRA [Suspect]
     Dosage: 15 DAYS AFTER LAST 80  MG DOSE
     Dates: start: 20100601, end: 20100601
  7. WELLBUTRIN [Concomitant]
     Indication: DEPRESSION
  8. OMEPRAZOLE [Concomitant]
     Indication: GASTROOESOPHAGEAL REFLUX DISEASE
  9. HUMIRA [Suspect]
     Indication: CROHN'S DISEASE
     Dosage: LOADING DOSE
     Dates: start: 20100601, end: 20100601

REACTIONS (4)
  - INTESTINAL OBSTRUCTION [None]
  - VOMITING [None]
  - INCISION SITE INFECTION [None]
  - IMPAIRED HEALING [None]
